FAERS Safety Report 10731517 (Version 1)
Quarter: 2015Q1

REPORT INFORMATION
  Report Type: Spontaneous
  Country: US (occurrence: US)
  Receive Date: 20150123
  Receipt Date: 20150123
  Transmission Date: 20150721
  Serious: No
  Sender: FDA-Public Use
  Company Number: US-ASTRAZENECA-2014SE81606

PATIENT
  Age: 765 Month
  Sex: Female
  Weight: 62.6 kg

DRUGS (4)
  1. GEODON [Suspect]
     Active Substance: ZIPRASIDONE HYDROCHLORIDE\ZIPRASIDONE MESYLATE
     Indication: DEPRESSION
     Route: 065
     Dates: start: 20090430, end: 201405
  2. GEODON [Suspect]
     Active Substance: ZIPRASIDONE HYDROCHLORIDE\ZIPRASIDONE MESYLATE
     Indication: DEPRESSION
     Route: 065
     Dates: start: 20140815
  3. TOPROL XL [Suspect]
     Active Substance: METOPROLOL SUCCINATE
     Indication: HYPERTENSION
     Route: 048
  4. GEODON [Suspect]
     Active Substance: ZIPRASIDONE HYDROCHLORIDE\ZIPRASIDONE MESYLATE
     Indication: DEPRESSION
     Route: 065

REACTIONS (15)
  - Osteoporosis [Unknown]
  - Neck mass [Not Recovered/Not Resolved]
  - Hypoaesthesia [Not Recovered/Not Resolved]
  - Nail disorder [Not Recovered/Not Resolved]
  - Intentional product misuse [Unknown]
  - Hypertension [Unknown]
  - Paraesthesia [Not Recovered/Not Resolved]
  - Labelled drug-drug interaction medication error [Unknown]
  - Hair growth abnormal [Not Recovered/Not Resolved]
  - Nail dystrophy [Unknown]
  - Arrhythmia [Unknown]
  - Seborrhoea [Unknown]
  - Skin disorder [Not Recovered/Not Resolved]
  - Alopecia [Not Recovered/Not Resolved]
  - Nail ridging [Unknown]

NARRATIVE: CASE EVENT DATE: 201405
